FAERS Safety Report 4837682-6 (Version None)
Quarter: 2005Q4

REPORT INFORMATION
  Report Type: 
  Country: None (occurrence: None)
  Receive Date: 20051128
  Receipt Date: 20050927
  Transmission Date: 20060501
  Serious: Yes (Hospitalization, Other)
  Sender: FDA-Public Use
  Company Number: US-MERCK-0509USA04403

PATIENT
  Age: 46 Year
  Sex: Male
  Weight: 70 kg

DRUGS (9)
  1. VIOXX [Suspect]
     Indication: ARTHRITIS
     Route: 048
     Dates: end: 20020715
  2. ALLOPURINOL [Concomitant]
     Route: 065
  3. COMBIVENT [Concomitant]
     Route: 065
  4. FLONASE [Concomitant]
     Route: 065
  5. TRICOR [Concomitant]
     Route: 065
  6. PREVACID [Concomitant]
     Route: 065
  7. COZAAR [Concomitant]
     Route: 048
  8. LORTAB [Concomitant]
     Route: 065
  9. DIAZEPAM [Concomitant]
     Route: 065

REACTIONS (17)
  - ANKLE FRACTURE [None]
  - CAROTID ARTERY STENOSIS [None]
  - CEREBROVASCULAR ACCIDENT [None]
  - CHEST PAIN [None]
  - COSTOCHONDRITIS [None]
  - DYSLIPIDAEMIA [None]
  - FALL [None]
  - GENERALISED ANXIETY DISORDER [None]
  - HAEMATEMESIS [None]
  - HYPERLIPIDAEMIA [None]
  - HYPERTRIGLYCERIDAEMIA [None]
  - LOSS OF CONSCIOUSNESS [None]
  - METABOLIC SYNDROME [None]
  - MYOCARDIAL INFARCTION [None]
  - PEPTIC ULCER [None]
  - SYNCOPE [None]
  - WOUND INFECTION [None]
